FAERS Safety Report 10672390 (Version 1)
Quarter: 2014Q4

REPORT INFORMATION
  Report Type: Spontaneous
  Country: US (occurrence: None)
  Receive Date: 20141222
  Receipt Date: 20141222
  Transmission Date: 20150529
  Serious: No
  Sender: FDA-Public Use
  Company Number: None

PATIENT
  Age: 58 Year
  Sex: Female

DRUGS (1)
  1. TERBINAFINE [Suspect]
     Active Substance: TERBINAFINE
     Indication: ONYCHOMYCOSIS
     Route: 048
     Dates: start: 20140131, end: 20140331

REACTIONS (5)
  - Asthenopia [None]
  - Blepharitis [None]
  - Influenza [None]
  - Vision blurred [None]
  - Liver function test abnormal [None]

NARRATIVE: CASE EVENT DATE: 20140131
